FAERS Safety Report 17355693 (Version 1)
Quarter: 2020Q1

REPORT INFORMATION
  Report Type: Spontaneous
  Country: DE (occurrence: DE)
  Receive Date: 20200131
  Receipt Date: 20200131
  Transmission Date: 20200409
  Serious: Yes (Other)
  Sender: FDA-Public Use
  Company Number: DE-009507513-2001DEU010665

PATIENT
  Age: 44 Year
  Sex: Female

DRUGS (1)
  1. PEGINTRON [Suspect]
     Active Substance: PEGINTERFERON ALFA-2B
     Dosage: UNK
     Dates: start: 201205, end: 201412

REACTIONS (7)
  - Exposure via breast milk [Recovered/Resolved]
  - Pain in extremity [Unknown]
  - Aggression [Unknown]
  - Mental disorder [Unknown]
  - Exposure during pregnancy [Recovered/Resolved]
  - Fatigue [Unknown]
  - Autoimmune thyroiditis [Unknown]
